FAERS Safety Report 7796144-7 (Version None)
Quarter: 2011Q4

REPORT INFORMATION
  Report Type: 
  Country: None (occurrence: None)
  Receive Date: 20111004
  Receipt Date: 20110926
  Transmission Date: 20120403
  Serious: Yes (Life-Threatening, Hospitalization)
  Sender: FDA-Public Use
  Company Number: JP-TYCO HEALTHCARE/MALLINCKRODT-T201101110

PATIENT
  Age: 80 Year
  Sex: Male
  Weight: 52 kg

DRUGS (1)
  1. OPTIRAY 160 [Suspect]
     Indication: COMPUTERISED TOMOGRAM
     Dosage: 90 ML, SINGLE
     Route: 042
     Dates: start: 20110520, end: 20110520

REACTIONS (1)
  - ANAPHYLACTIC SHOCK [None]
